FAERS Safety Report 8840147 (Version 2)
Quarter: 2012Q4

REPORT INFORMATION
  Report Type: 
  Country: US (occurrence: US)
  Receive Date: 20121015
  Receipt Date: 20121105
  Transmission Date: 20130627
  Serious: No
  Sender: FDA-Public Use
  Company Number: US-PFIZER INC-2012252885

PATIENT
  Age: 64 Year
  Sex: Male

DRUGS (1)
  1. INLYTA [Suspect]
     Indication: METASTATIC RENAL CELL CARCINOMA
     Dosage: 5 mg, 2x/day
     Dates: start: 20120816

REACTIONS (2)
  - Disease progression [Unknown]
  - Metastatic renal cell carcinoma [Unknown]
